FAERS Safety Report 4352477-8 (Version None)
Quarter: 2004Q2

REPORT INFORMATION
  Report Type: 
  Country: None (occurrence: None)
  Receive Date: 20040409
  Receipt Date: 20040205
  Transmission Date: 20050107
  Serious: No
  Sender: FDA-Public Use
  Company Number: PHEH2004US01019

PATIENT
  Age: 4 Year
  Sex: Female
  Weight: 19 kg

DRUGS (2)
  1. ELIDEL [Suspect]
     Indication: ECZEMA
     Dosage: BID, TOPICAL
     Route: 061
     Dates: start: 20031208, end: 20040130
  2. OXISTAT [Concomitant]

REACTIONS (1)
  - HYPOTRICHOSIS [None]
